FAERS Safety Report 8484611-2 (Version None)
Quarter: 2012Q3

REPORT INFORMATION
  Report Type: 
  Country: None (occurrence: None)
  Receive Date: 20120703
  Receipt Date: 20120625
  Transmission Date: 20120928
  Serious: Yes (Other)
  Sender: FDA-Public Use
  Company Number: US-BAYER-2012-058650

PATIENT
  Age: 34 Year
  Sex: Female
  Weight: 79.365 kg

DRUGS (7)
  1. MIRENA [Suspect]
     Dosage: 20 MCG/24HR, CONT
     Route: 015
     Dates: start: 20110907, end: 20120612
  2. CIPROFLOXACIN HCL [Concomitant]
     Indication: URINARY TRACT INFECTION
     Dosage: 500 MG, UNK
     Dates: start: 20120614, end: 20120614
  3. TOPAMAX [Concomitant]
     Indication: MIGRAINE
  4. PRILOSEC [Concomitant]
     Indication: GASTROOESOPHAGEAL REFLUX DISEASE
  5. ALLEGRA [Concomitant]
     Indication: HYPERSENSITIVITY
  6. MIRENA [Suspect]
     Indication: CONTRACEPTION
     Dosage: 20 MCG/24HR, CONT
     Route: 015
     Dates: start: 20100622, end: 20110812
  7. DIFLUCAN [Concomitant]
     Indication: FUNGAL INFECTION

REACTIONS (2)
  - DEVICE DISLOCATION [None]
  - RUPTURED ECTOPIC PREGNANCY [None]
